FAERS Safety Report 7784170-3 (Version None)
Quarter: 2011Q3

REPORT INFORMATION
  Report Type: 
  Country: None (occurrence: None)
  Receive Date: 20110928
  Receipt Date: 20110915
  Transmission Date: 20111222
  Serious: Yes (Hospitalization, Other)
  Sender: FDA-Public Use
  Company Number: US-ELI_LILLY_AND_COMPANY-US201109004875

PATIENT
  Sex: Female

DRUGS (15)
  1. COLACE [Concomitant]
     Indication: CONSTIPATION
     Dosage: 100 MG, BID
  2. FORTEO [Suspect]
     Indication: OSTEOPOROSIS
     Dosage: 20 UG, QD
     Dates: start: 20110401
  3. NEURONTIN [Concomitant]
     Indication: NEUROPATHY PERIPHERAL
     Dosage: 300 MG, UNK
  4. TRAMADOL [Concomitant]
     Indication: PAIN
     Dosage: 1 DF, PRN
  5. OMEPRAZOLE [Concomitant]
     Indication: GASTROOESOPHAGEAL REFLUX DISEASE
     Dosage: 20 MG, QD
  6. ASPIRIN [Concomitant]
     Indication: CARDIAC DISORDER
     Dosage: 81 MG, QD
  7. CALTRATE + D [Concomitant]
     Indication: SUPPLEMENTATION THERAPY
     Dosage: UNK, BID
  8. VITAMIN B-12 [Concomitant]
     Dosage: 2 ML, WEEKLY (1/W)
  9. OXYTROL [Concomitant]
     Indication: HYPERTONIC BLADDER
     Dosage: 3.9 MG, 2/W
  10. PLAVIX [Concomitant]
     Indication: COAGULOPATHY
     Dosage: 75 MG, QD
  11. LOPRESSOR [Concomitant]
     Dosage: 50 MG, QD
  12. ESTRIOL [Concomitant]
     Dosage: 0.05 MG, 2/W
  13. POTASSIUM CHLORIDE [Concomitant]
     Dosage: UNK, PRN
  14. CYMBALTA [Suspect]
     Indication: NEUROPATHY PERIPHERAL
     Dosage: 60 MG, QD
     Dates: start: 20050101
  15. SIMVASTATIN [Concomitant]
     Indication: BLOOD CHOLESTEROL
     Dosage: 10 MG, QD

REACTIONS (12)
  - DECREASED INTEREST [None]
  - KIDNEY INFECTION [None]
  - SLEEP APNOEA SYNDROME [None]
  - FALL [None]
  - LOSS OF CONSCIOUSNESS [None]
  - GASTROOESOPHAGEAL REFLUX DISEASE [None]
  - FEELING ABNORMAL [None]
  - HYPERTENSION [None]
  - VOMITING [None]
  - HEAD INJURY [None]
  - DEHYDRATION [None]
  - HYPOTENSION [None]
